FAERS Safety Report 24824634 (Version 2)
Quarter: 2025Q2

REPORT INFORMATION
  Report Type: Spontaneous
  Country: US (occurrence: US)
  Receive Date: 20250109
  Receipt Date: 20250519
  Transmission Date: 20250716
  Serious: Yes (Hospitalization)
  Sender: NORDIC PHARMA
  Company Number: US-NORIDC PHARMA, INC-2024US004924

PATIENT

DRUGS (1)
  1. MESALAMINE RECTAL [Suspect]
     Active Substance: MESALAMINE
     Indication: Colitis microscopic
     Route: 054

REACTIONS (5)
  - Pyrexia [Recovered/Resolved]
  - Malaise [Unknown]
  - Headache [Unknown]
  - Myalgia [Unknown]
  - Decreased appetite [Unknown]
